FAERS Safety Report 20966558 (Version 1)
Quarter: 2022Q2

REPORT INFORMATION
  Report Type: Spontaneous
  Country: US (occurrence: None)
  Receive Date: 20220615
  Receipt Date: 20220615
  Transmission Date: 20220721
  Serious: Yes (Hospitalization)
  Sender: FDA-Public Use
  Company Number: None

PATIENT
  Age: 36 Year
  Sex: Female
  Weight: 54 kg

DRUGS (1)
  1. STELARA [Suspect]
     Active Substance: USTEKINUMAB
     Indication: Crohn^s disease
     Dosage: FREQUENCY : ONCE;?
     Route: 042
     Dates: start: 20220615, end: 20220615

REACTIONS (11)
  - Infusion related reaction [None]
  - Palpitations [None]
  - Chest discomfort [None]
  - Throat tightness [None]
  - Dyspnoea [None]
  - Nausea [None]
  - Erythema [None]
  - Chest pain [None]
  - Fatigue [None]
  - Hypoaesthesia [None]
  - Paraesthesia [None]

NARRATIVE: CASE EVENT DATE: 20220615
